FAERS Safety Report 5788775-0 (Version None)
Quarter: 2008Q2

REPORT INFORMATION
  Report Type: 
  Country: None (occurrence: None)
  Receive Date: 20080626
  Receipt Date: 20080617
  Transmission Date: 20081010
  Serious: Yes (Hospitalization)
  Sender: FDA-Public Use
  Company Number: GR-AMGEN-UK287940

PATIENT
  Sex: Male
  Weight: 54 kg

DRUGS (3)
  1. NEULASTA [Suspect]
     Indication: NON-HODGKIN'S LYMPHOMA
     Route: 058
     Dates: start: 20080401
  2. TAZOCIN (LEDERLE) [Concomitant]
     Route: 042
     Dates: start: 20080613, end: 20080617
  3. AMIKACIN [Concomitant]
     Route: 042
     Dates: start: 20080613, end: 20080617

REACTIONS (1)
  - FEBRILE NEUTROPENIA [None]
